FAERS Safety Report 7169620-8 (Version None)
Quarter: 2010Q4

REPORT INFORMATION
  Report Type: 
  Country: None (occurrence: None)
  Receive Date: 20101217
  Receipt Date: 20101209
  Transmission Date: 20110411
  Serious: Yes (Hospitalization)
  Sender: FDA-Public Use
  Company Number: US-US-EMD SERONO, INC.-7031654

PATIENT
  Sex: Female
  Weight: 90 kg

DRUGS (1)
  1. REBIF [Suspect]
     Indication: MULTIPLE SCLEROSIS
     Route: 058
     Dates: start: 20030101

REACTIONS (3)
  - BILE DUCT STONE [None]
  - CHOLECYSTITIS [None]
  - CHOLELITHIASIS [None]
